FAERS Safety Report 8011479-0 (Version None)
Quarter: 2011Q4

REPORT INFORMATION
  Report Type: 
  Country: None (occurrence: None)
  Receive Date: 20111222
  Receipt Date: 20111216
  Transmission Date: 20120403
  Serious: Yes (Life-Threatening, Hospitalization)
  Sender: FDA-Public Use
  Company Number: GER/UKI/11/0022363

PATIENT
  Age: 68 Year
  Sex: Male

DRUGS (9)
  1. BISOPROLOL FUMARATE [Concomitant]
  2. OMACOR [Concomitant]
  3. RAMIPRIL [Concomitant]
  4. TRAMADOL HCL [Concomitant]
  5. AMLODIPINE [Suspect]
     Indication: HYPERTENSION
     Dosage: 5 MG, 1 IN 1 D, ORAL
     Route: 048
     Dates: start: 20111114
  6. ASPIRIN [Concomitant]
  7. LANSOPRAZOLE [Concomitant]
  8. DIETHYLSTILBESTROL [Suspect]
     Indication: PRODUCT USED FOR UNKNOWN INDICATION
     Dosage: 1 MG, 1 IN 1 D, ORAL
     Route: 048
     Dates: start: 20110601
  9. PRAVASTATIN [Concomitant]

REACTIONS (4)
  - PAIN IN EXTREMITY [None]
  - EMBOLISM [None]
  - MYALGIA [None]
  - BACK PAIN [None]
